FAERS Safety Report 6375898-0 (Version None)
Quarter: 2009Q3

REPORT INFORMATION
  Report Type: 
  Country: None (occurrence: None)
  Receive Date: 20090917
  Receipt Date: 20090904
  Transmission Date: 20100115
  Serious: Yes (Other)
  Sender: FDA-Public Use
  Company Number: ADR19362009

PATIENT
  Sex: Male

DRUGS (4)
  1. SALBUTAMOL (MFR: UNKNOWN) [Suspect]
     Indication: ASTHMA
     Dosage: INHALATION
     Route: 055
  2. FLUTICASONE PROPIONATE [Concomitant]
  3. SERETIDE [Concomitant]
  4. ZYBAN [Concomitant]

REACTIONS (3)
  - ASTHMA [None]
  - CONDITION AGGRAVATED [None]
  - NASOPHARYNGITIS [None]
